FAERS Safety Report 23991190 (Version 1)
Quarter: 2024Q2

REPORT INFORMATION
  Report Type: Spontaneous
  Country: US (occurrence: US)
  Receive Date: 20240619
  Receipt Date: 20240619
  Transmission Date: 20240716
  Serious: No
  Sender: FDA-Public Use
  Company Number: US-JNJFOC-20240588745

PATIENT
  Age: 59 Year
  Sex: Female

DRUGS (6)
  1. TYLENOL [Suspect]
     Active Substance: ACETAMINOPHEN
     Indication: Headache
     Route: 065
     Dates: start: 20240418
  2. OPSUMIT [Concomitant]
     Active Substance: MACITENTAN
     Indication: Product used for unknown indication
     Route: 065
  3. TYVASO DPI [Concomitant]
     Active Substance: TREPROSTINIL
     Indication: Pulmonary arterial hypertension
     Route: 055
     Dates: start: 202404
  4. TYVASO DPI [Concomitant]
     Active Substance: TREPROSTINIL
     Route: 055
     Dates: start: 202404
  5. TYVASO DPI [Concomitant]
     Active Substance: TREPROSTINIL
     Route: 055
     Dates: start: 202405, end: 202405
  6. TYVASO DPI [Concomitant]
     Active Substance: TREPROSTINIL
     Route: 055
     Dates: start: 202405

REACTIONS (1)
  - Adverse event [Unknown]

NARRATIVE: CASE EVENT DATE: 20240101
